FAERS Safety Report 9759741 (Version 2)
Quarter: 2013Q4

REPORT INFORMATION
  Report Type: Spontaneous
  Country: US (occurrence: US)
  Receive Date: 20131216
  Receipt Date: 20131216
  Transmission Date: 20140711
  Serious: No
  Sender: FDA-Public Use
  Company Number: US-GILEAD-2010-0028631

PATIENT
  Sex: Male
  Weight: 77.11 kg

DRUGS (8)
  1. LETAIRIS [Suspect]
     Indication: PULMONARY ARTERIAL HYPERTENSION
     Route: 048
     Dates: start: 20100402
  2. LIPITOR [Concomitant]
  3. CITALOPRAM [Concomitant]
  4. RANTIDINE [Concomitant]
  5. ZEGERID [Concomitant]
  6. VICODIN [Concomitant]
  7. CALCIUM CITRATE [Concomitant]
  8. VITAMIN D [Concomitant]

REACTIONS (1)
  - Hepatic enzyme increased [Unknown]
